FAERS Safety Report 23870966 (Version 1)
Quarter: 2024Q2

REPORT INFORMATION
  Report Type: Spontaneous
  Country: SK (occurrence: SK)
  Receive Date: 20240518
  Receipt Date: 20240518
  Transmission Date: 20240716
  Serious: Yes (Hospitalization)
  Sender: FDA-Public Use
  Company Number: SK-TEVA-VS-3198200

PATIENT
  Age: 80 Year
  Sex: Male

DRUGS (1)
  1. DICLOFENAC [Suspect]
     Active Substance: DICLOFENAC
     Indication: Spinal pain
     Dosage: LONGTERM USE
     Route: 065

REACTIONS (7)
  - Microcytic anaemia [Unknown]
  - Dyspepsia [Unknown]
  - Gastritis erosive [Unknown]
  - Duodenal stenosis [Unknown]
  - Large intestine erosion [Unknown]
  - Weight decreased [Unknown]
  - Small intestinal stenosis [Unknown]
